FAERS Safety Report 16927045 (Version 1)
Quarter: 2019Q4

REPORT INFORMATION
  Report Type: Spontaneous
  Country: US (occurrence: US)
  Receive Date: 20191016
  Receipt Date: 20191016
  Transmission Date: 20200122
  Serious: No
  Sender: FDA-Public Use
  Company Number: US-TAKEDA-2019TUS056207

PATIENT
  Age: 63 Year
  Sex: Male
  Weight: 64.4 kg

DRUGS (1)
  1. PREVACID [Suspect]
     Active Substance: LANSOPRAZOLE
     Indication: BARRETT^S OESOPHAGUS
     Dosage: UNK
     Route: 065

REACTIONS (10)
  - Eating disorder [Unknown]
  - Nerve injury [Unknown]
  - Blood pressure increased [Unknown]
  - Food intolerance [Unknown]
  - Incorrect product administration duration [Unknown]
  - Vascular injury [Unknown]
  - Arthropathy [Unknown]
  - Weight decreased [Unknown]
  - Amnesia [Unknown]
  - Ingrowing nail [Unknown]
